FAERS Safety Report 8076722-0 (Version None)
Quarter: 2012Q1

REPORT INFORMATION
  Report Type: 
  Country: None (occurrence: None)
  Receive Date: 20120127
  Receipt Date: 20101124
  Transmission Date: 20120608
  Serious: Yes (Other)
  Sender: FDA-Public Use
  Company Number: PHHY2010FR093523

PATIENT
  Sex: Male
  Weight: 69 kg

DRUGS (3)
  1. ZOMETA [Suspect]
     Indication: PROSTATE CANCER
     Dosage: 4 MG/5ML
     Route: 042
     Dates: start: 20090724, end: 20100604
  2. ESTRACYT [Concomitant]
     Indication: PROSTATE CANCER
     Dosage: 140 MG, QID
     Route: 048
     Dates: start: 20091101
  3. HYDROCORTISONE [Concomitant]
     Indication: PROSTATE CANCER
     Dosage: 10 MG, TID
     Route: 048
     Dates: start: 20091101

REACTIONS (8)
  - OSTEONECROSIS OF JAW [None]
  - ASTHENIA [None]
  - BONE LESION [None]
  - GENERAL PHYSICAL HEALTH DETERIORATION [None]
  - ANAEMIA [None]
  - TOOTH ABSCESS [None]
  - GINGIVITIS [None]
  - OEDEMA PERIPHERAL [None]
